FAERS Safety Report 5150348-0 (Version None)
Quarter: 2006Q4

REPORT INFORMATION
  Report Type: 
  Country: None (occurrence: None)
  Receive Date: 20061114
  Receipt Date: 20061024
  Transmission Date: 20070319
  Serious: Yes (Other)
  Sender: FDA-Public Use
  Company Number: PHBS2006IE16444

PATIENT
  Age: 59 Year
  Sex: Female

DRUGS (5)
  1. FOSAMAX [Concomitant]
     Dosage: 70 MG, QW
     Route: 048
  2. LANSOPRAZOLE [Concomitant]
     Dosage: 30 MG, QD
     Route: 048
  3. LIPITOR [Concomitant]
     Dosage: 10 MG/D
     Route: 048
  4. IDEOS [Concomitant]
     Route: 048
  5. FEMARA [Suspect]
     Indication: BREAST CANCER FEMALE
     Dosage: 2.5 MG/DAY
     Dates: start: 20060711

REACTIONS (1)
  - HYPERTRICHOSIS [None]
